FAERS Safety Report 15813496 (Version 1)
Quarter: 2019Q1

REPORT INFORMATION
  Report Type: Report from Study
  Country: IT (occurrence: IT)
  Receive Date: 20190111
  Receipt Date: 20190111
  Transmission Date: 20190417
  Serious: Yes (Hospitalization)
  Sender: FDA-Public Use
  Company Number: IT-TEVA-2019-IT-997627

PATIENT
  Age: 69 Year
  Sex: Female

DRUGS (5)
  1. AMOXICILLIN. [Suspect]
     Active Substance: AMOXICILLIN
     Indication: DENTAL OPERATION
     Route: 048
     Dates: start: 20181223, end: 20181223
  2. BISOPROLOL FUMARATE. [Concomitant]
     Active Substance: BISOPROLOL FUMARATE
     Indication: HYPERTENSION
     Dosage: 2500 MICROGRAM DAILY;
     Route: 048
  3. METFORMIN HYDROCHLORIDE. [Concomitant]
     Active Substance: METFORMIN HYDROCHLORIDE
     Indication: TYPE 2 DIABETES MELLITUS
     Dosage: 1000 MILLIGRAM DAILY;
     Route: 048
  4. ZOFENOPRIL CALCIO/IDROCLOROTIAZIDE [Concomitant]
     Indication: HYPERTENSION
     Dosage: 1 DOSAGE FORMS DAILY;
     Route: 048
  5. ATORVASTATIN [Concomitant]
     Active Substance: ATORVASTATIN
     Indication: DYSLIPIDAEMIA

REACTIONS (2)
  - Pruritus generalised [Recovered/Resolved]
  - Urticaria [Recovered/Resolved]

NARRATIVE: CASE EVENT DATE: 20181223
